FAERS Safety Report 7774889 (Version 2)
Quarter: 2013Q1

REPORT INFORMATION
  Report Type: Spontaneous
  Country: US (occurrence: None)
  Receive Date: 20101230
  Receipt Date: 20130329
  Transmission Date: 20140127
  Serious: Yes (Other)
  Sender: FDA-Public Use
  Company Number: AUR-APL-2010-03152

PATIENT
  Age: 58 Year
  Sex: Male

DRUGS (5)
  1. FLUOXETINE [Suspect]
  2. TRIMETHOPRIM + SULFAMETHOXAZOLE [Suspect]
  3. AZITHROMYCIN [Suspect]
  4. FLECAINIDE [Suspect]
     Dosage: 100 MG, 2 IN 1 D
  5. DILTIAZEM [Suspect]

REACTIONS (4)
  - ATRIOVENTRICULAR BLOCK [None]
  - ELECTROCARDIOGRAM QT PROLONGED [None]
  - RIGHT VENTRICULAR HYPERTROPHY [None]
  - Atrial conduction time prolongation [None]
